FAERS Safety Report 7598004 (Version 5)
Quarter: 2013Q4

REPORT INFORMATION
  Report Type: Spontaneous
  Country: US (occurrence: US)
  Receive Date: 20100920
  Receipt Date: 20131010
  Transmission Date: 20140711
  Serious: Yes (Hospitalization, Other)
  Sender: FDA-Public Use
  Company Number: US-NAPPMUNDI-USA-2010-0047008

PATIENT
  Sex: Male

DRUGS (6)
  1. OXYCONTIN (NDA 22-272) [Suspect]
     Indication: BACK PAIN
     Dosage: 230 MG, DAILY
     Dates: start: 20100903
  2. OXYCONTIN (NDA 22-272) [Suspect]
     Dosage: 60 MG, UNK
     Route: 048
  3. OXYCONTIN (NDA 22-272) [Suspect]
     Dosage: 40 MG, UNK
     Route: 048
  4. OXYCODONE HCL IMMEDIATE RELEASE (91-490) [Suspect]
     Indication: BREAKTHROUGH PAIN
     Dosage: 15 MG, UNK
  5. OXYCODONE HCL IMMEDIATE RELEASE (91-490) [Suspect]
     Dosage: 30 MG, UNK
  6. LEVOXYL [Concomitant]
     Indication: PRODUCT USED FOR UNKNOWN INDICATION
     Dosage: UNK UNK, UNK

REACTIONS (17)
  - Choking [Recovered/Resolved]
  - Foreign body [Recovered/Resolved]
  - Thyroidectomy [Unknown]
  - General physical health deterioration [Unknown]
  - Back pain [Unknown]
  - Medication residue present [Unknown]
  - Migraine [Unknown]
  - Diarrhoea [Unknown]
  - Hyperhidrosis [Not Recovered/Not Resolved]
  - Cold sweat [Unknown]
  - Vomiting [Unknown]
  - Drug ineffective [Unknown]
  - Product quality issue [Unknown]
  - Drug withdrawal syndrome [Not Recovered/Not Resolved]
  - Malaise [Unknown]
  - Drug effect delayed [Unknown]
  - Inadequate analgesia [Unknown]
